FAERS Safety Report 6394594-7 (Version None)
Quarter: 2009Q4

REPORT INFORMATION
  Report Type: 
  Country: None (occurrence: None)
  Receive Date: 20091009
  Receipt Date: 20091001
  Transmission Date: 20100525
  Serious: Yes (Hospitalization)
  Sender: FDA-Public Use
  Company Number: IT-SOLVAY-00209005873

PATIENT
  Age: 27135 Day
  Sex: Female

DRUGS (4)
  1. COVERSYL 4 MG [Suspect]
     Indication: HYPERTENSION
     Dosage: DAILY DOSE: 4 MILLIGRAM(S)
     Route: 048
     Dates: start: 20080101, end: 20090817
  2. LYSEEN [Concomitant]
     Indication: DRUG USE FOR UNKNOWN INDICATION
     Dosage: DAILY DOSE:  UNKNOWN
     Route: 065
  3. MEDROL [Suspect]
     Indication: DRUG USE FOR UNKNOWN INDICATION
     Dosage: DAILY DOSE: 16 MILLIGRAM(S)
     Route: 048
     Dates: start: 20080101, end: 20090817
  4. LEXOTAN [Concomitant]
     Indication: DRUG USE FOR UNKNOWN INDICATION
     Dosage: DAILY DOSE:  UNKNOWN
     Route: 065

REACTIONS (5)
  - ASTHENIA [None]
  - DECREASED APPETITE [None]
  - HYPONATRAEMIA [None]
  - PRESYNCOPE [None]
  - VOMITING [None]
